FAERS Safety Report 18109114 (Version 4)
Quarter: 2021Q2

REPORT INFORMATION
  Report Type: Spontaneous
  Country: US (occurrence: US)
  Receive Date: 20200804
  Receipt Date: 20210629
  Transmission Date: 20210717
  Serious: Yes (Other)
  Sender: FDA-Public Use
  Company Number: US-GILEAD-2020-0487612

PATIENT
  Age: 68 Year
  Sex: Male

DRUGS (2)
  1. ATRIPLA [Suspect]
     Active Substance: EFAVIRENZ\EMTRICITABINE\TENOFOVIR DISOPROXIL FUMARATE
     Indication: HIV INFECTION
     Dosage: UNK
     Route: 048
     Dates: start: 2000, end: 2016
  2. ATRIPLA [Suspect]
     Active Substance: EFAVIRENZ\EMTRICITABINE\TENOFOVIR DISOPROXIL FUMARATE
     Dosage: UNK
     Route: 048
     Dates: start: 20130820, end: 20170809

REACTIONS (12)
  - Renal failure [Not Recovered/Not Resolved]
  - Underweight [Unknown]
  - Bone density decreased [Not Recovered/Not Resolved]
  - Hip fracture [Recovered/Resolved]
  - Osteoarthropathy [Not Recovered/Not Resolved]
  - Hip arthroplasty [Unknown]
  - Chronic kidney disease [Not Recovered/Not Resolved]
  - Acute kidney injury [Recovered/Resolved]
  - Chronic kidney disease [Not Recovered/Not Resolved]
  - Acute kidney injury [Not Recovered/Not Resolved]
  - Osteopenia [Not Recovered/Not Resolved]
  - Fracture [Unknown]

NARRATIVE: CASE EVENT DATE: 20140627
